FAERS Safety Report 10653883 (Version 3)
Quarter: 2015Q1

REPORT INFORMATION
  Report Type: Spontaneous
  Country: BE (occurrence: BE)
  Receive Date: 20141216
  Receipt Date: 20150102
  Transmission Date: 20150720
  Serious: Yes (Death, Other)
  Sender: FDA-Public Use
  Company Number: BE-UCBSA-2014021123

PATIENT
  Age: 23 Year
  Sex: Male

DRUGS (6)
  1. OXCARBAZEPINE. [Suspect]
     Active Substance: OXCARBAZEPINE
     Dosage: 450 MG, 2X/DAY (BID)
     Route: 048
     Dates: start: 20140519
  2. KEPPRA [Concomitant]
     Active Substance: LEVETIRACETAM
     Indication: EPILEPSY
     Dosage: 1000 MG, 2X/DAY (BID)
     Route: 048
  3. FRISIUM [Concomitant]
     Active Substance: CLOBAZAM
     Indication: SEIZURE
     Dosage: 5-10 MG ,1/DAY IF NEEDED
     Route: 048
  4. OXCARBAZEPINE. [Suspect]
     Active Substance: OXCARBAZEPINE
     Indication: EPILEPSY
     Dosage: 600 MG, 2X/DAY (BID)
  5. VIMPAT [Suspect]
     Active Substance: LACOSAMIDE
     Dosage: SLOW TITRATION SCHEME UPTO A DOSAGE 100 MG, 2X/DAY (BID)
     Route: 048
     Dates: start: 20140402
  6. VIMPAT [Suspect]
     Active Substance: LACOSAMIDE
     Indication: EPILEPSY
     Dosage: UNK

REACTIONS (4)
  - Sudden unexplained death in epilepsy [Fatal]
  - Atrioventricular block [Unknown]
  - Seizure [Unknown]
  - Fatigue [Unknown]

NARRATIVE: CASE EVENT DATE: 2014
